FAERS Safety Report 5363038-6 (Version None)
Quarter: 2007Q2

REPORT INFORMATION
  Report Type: 
  Country: None (occurrence: None)
  Receive Date: 20070618
  Receipt Date: 20070607
  Transmission Date: 20071010
  Serious: Yes (Other)
  Sender: FDA-Public Use
  Company Number: 2007SP011534

PATIENT
  Sex: Male

DRUGS (2)
  1. PEG-INTRON [Suspect]
     Indication: HEPATITIS C
     Dosage: ONCE; SC
     Route: 058
  2. RIBAPAK [Suspect]
     Indication: HEPATITIS C
     Dosage: PO
     Route: 048

REACTIONS (4)
  - BLOOD PRESSURE IMMEASURABLE [None]
  - EYE SWELLING [None]
  - HAEMATEMESIS [None]
  - LOSS OF CONSCIOUSNESS [None]
